FAERS Safety Report 25329163 (Version 2)
Quarter: 2025Q4

REPORT INFORMATION
  Report Type: Spontaneous
  Country: US (occurrence: US)
  Receive Date: 20250519
  Receipt Date: 20251029
  Transmission Date: 20260117
  Serious: No
  Sender: BRISTOL-MYERS SQUIBB COMPANY
  Company Number: US-BRISTOL-MYERS SQUIBB COMPANY-2025-070358

PATIENT
  Age: 73 Year
  Sex: Female
  Weight: 73.48 kg

DRUGS (4)
  1. ELIQUIS [Suspect]
     Active Substance: APIXABAN
     Indication: Deep vein thrombosis
     Route: 048
  2. ELIQUIS [Suspect]
     Active Substance: APIXABAN
     Indication: Pulmonary embolism
  3. MELATONIN [Concomitant]
     Active Substance: MELATONIN
     Indication: Product used for unknown indication
     Dosage: STARTED BOTH IN HOSPITAL BEFORE STARTING ELIQUIS.
  4. VITAMINS NOS [Concomitant]
     Active Substance: VITAMINS
     Indication: Product used for unknown indication
     Dosage: STARTED BOTH IN HOSPITAL BEFORE STARTING ELIQUIS.

REACTIONS (14)
  - Anaemia [Unknown]
  - Fatigue [Unknown]
  - Flatulence [Unknown]
  - Dyspnoea [Unknown]
  - COVID-19 [Unknown]
  - Food allergy [Unknown]
  - Tenderness [Unknown]
  - Insomnia [Unknown]
  - Abdominal discomfort [Unknown]
  - Residual symptom [Unknown]
  - Gingival disorder [Unknown]
  - Cough [Unknown]
  - Hypersensitivity [Unknown]
  - Throat irritation [Unknown]
